FAERS Safety Report 9931961 (Version 1)
Quarter: 2014Q1

REPORT INFORMATION
  Report Type: Spontaneous
  Country: US (occurrence: US)
  Receive Date: 20140228
  Receipt Date: 20140228
  Transmission Date: 20141002
  Serious: No
  Sender: FDA-Public Use
  Company Number: US-ABBVIE-13P-163-1101282-00

PATIENT
  Sex: Male
  Weight: 93.07 kg

DRUGS (3)
  1. ANDROGEL [Suspect]
     Indication: BLOOD TESTOSTERONE DECREASED
     Dosage: EIGHT PUMPS DAILY
     Route: 061
     Dates: start: 2010, end: 2012
  2. ANDROGEL [Suspect]
     Indication: BLOOD TESTOSTERONE DECREASED
     Dosage: FOUR PUMPS DAILY
     Route: 061
     Dates: start: 2012
  3. MULTIVITAMIN [Concomitant]
     Indication: PRODUCT USED FOR UNKNOWN INDICATION

REACTIONS (2)
  - Rash [Not Recovered/Not Resolved]
  - Keratosis pilaris [Not Recovered/Not Resolved]
